FAERS Safety Report 9345908 (Version 3)
Quarter: 2013Q3

REPORT INFORMATION
  Report Type: Report from Study
  Country: CA (occurrence: CA)
  Receive Date: 20130613
  Receipt Date: 20130912
  Transmission Date: 20140515
  Serious: Yes (Other)
  Sender: FDA-Public Use
  Company Number: CA-ROCHE-1197471

PATIENT
  Sex: Male

DRUGS (9)
  1. RITUXAN [Suspect]
     Indication: WALDENSTROM^S MACROGLOBULINAEMIA
     Route: 042
     Dates: start: 2005, end: 20130312
  2. RITUXAN [Suspect]
     Route: 042
     Dates: start: 20101026
  3. RITUXAN [Suspect]
     Route: 042
     Dates: start: 20121127
  4. TYLENOL #3 (CANADA) [Concomitant]
  5. NASONEX [Concomitant]
  6. VALACYCLOVIR [Concomitant]
  7. SEPTRA-DS [Concomitant]
  8. RABEPRAZOLE [Concomitant]
  9. QUETIAPINE FUMARATE [Concomitant]

REACTIONS (3)
  - Neoplasm malignant [Unknown]
  - Neoplasm malignant [Not Recovered/Not Resolved]
  - Full blood count decreased [Unknown]
